FAERS Safety Report 17313995 (Version 4)
Quarter: 2020Q1

REPORT INFORMATION
  Report Type: Report from Study
  Country: None (occurrence: CA)
  Receive Date: 20200124
  Receipt Date: 20200322
  Transmission Date: 20200409
  Serious: Yes (Hospitalization)
  Sender: FDA-Public Use
  Company Number: CA-ABBVIE-20K-028-3246745-00

PATIENT
  Age: 85 Year
  Sex: Female

DRUGS (2)
  1. HUMIRA [Suspect]
     Active Substance: ADALIMUMAB
     Route: 058
     Dates: start: 2020, end: 2020
  2. HUMIRA [Suspect]
     Active Substance: ADALIMUMAB
     Indication: CROHN^S DISEASE
     Route: 058
     Dates: start: 20190513, end: 20200115

REACTIONS (4)
  - Pneumonia aspiration [Unknown]
  - Delirium [Unknown]
  - Urinary tract infection [Unknown]
  - Delirium [Recovered/Resolved]

NARRATIVE: CASE EVENT DATE: 202001
